FAERS Safety Report 5055835-1 (Version None)
Quarter: 2006Q3

REPORT INFORMATION
  Report Type: 
  Country: None (occurrence: None)
  Receive Date: 20060718
  Receipt Date: 20060718
  Transmission Date: 20061208
  Serious: Yes (Hospitalization)
  Sender: FDA-Public Use
  Company Number: None

PATIENT
  Sex: Female
  Weight: 51.81 kg

DRUGS (2)
  1. CISPLATIN [Suspect]
     Dosage: 76 MG
  2. TOPOTECAN [Suspect]
     Dosage: 2.7 MG

REACTIONS (9)
  - ANAEMIA [None]
  - ASTHENIA [None]
  - BLOOD PRESSURE DECREASED [None]
  - DIZZINESS [None]
  - LETHARGY [None]
  - NEUTROPENIA [None]
  - PETECHIAE [None]
  - RASH [None]
  - THROMBOCYTOPENIA [None]
